FAERS Safety Report 9692417 (Version 1)
Quarter: 2013Q4

REPORT INFORMATION
  Report Type: Spontaneous
  Country: US (occurrence: US)
  Receive Date: 20131118
  Receipt Date: 20131118
  Transmission Date: 20140711
  Serious: No
  Sender: FDA-Public Use
  Company Number: US-PFIZER INC-2013327614

PATIENT
  Age: 37 Year
  Sex: Female
  Weight: 88.44 kg

DRUGS (3)
  1. EFFEXOR [Suspect]
     Indication: DEPRESSION
     Dosage: 150 MG, DAILY
  2. EFFEXOR [Suspect]
     Dosage: 75 MG, UNK
  3. ATIVAN [Concomitant]
     Indication: ANXIETY
     Dosage: 1 MG, AS NEEDED

REACTIONS (1)
  - Malaise [Unknown]
